FAERS Safety Report 4744365-X (Version None)
Quarter: 2005Q3

REPORT INFORMATION
  Report Type: 
  Country: None (occurrence: None)
  Receive Date: 20050809
  Receipt Date: 20050725
  Transmission Date: 20060218
  Serious: Yes (Hospitalization)
  Sender: FDA-Public Use
  Company Number: HQWYE145710OCT03

PATIENT
  Age: 33 Year
  Sex: Male
  Weight: 132 kg

DRUGS (5)
  1. RAPAMUNE [Suspect]
     Indication: PROPHYLAXIS AGAINST TRANSPLANT REJECTION
     Dosage: 5 MG 1X PER 1 DAY, ORAL
     Route: 048
     Dates: start: 20030822, end: 20031007
  2. PROGRAF [Concomitant]
  3. CORDARONE [Concomitant]
  4. COREG [Concomitant]
  5. VALCYTE [Concomitant]

REACTIONS (4)
  - BLOOD CREATININE INCREASED [None]
  - IMPAIRED HEALING [None]
  - WOUND DEHISCENCE [None]
  - WOUND DRAINAGE [None]
